FAERS Safety Report 15697126 (Version 2)
Quarter: 2019Q3

REPORT INFORMATION
  Report Type: Spontaneous
  Country: US (occurrence: US)
  Receive Date: 20181206
  Receipt Date: 20190726
  Transmission Date: 20191004
  Serious: No
  Sender: FDA-Public Use
  Company Number: US-PFIZER INC-2018497547

PATIENT
  Age: 51 Year
  Sex: Female
  Weight: 97.52 kg

DRUGS (6)
  1. LYRICA [Suspect]
     Active Substance: PREGABALIN
     Indication: FIBROMYALGIA
     Dosage: 150 MG, 2X/DAY
     Route: 048
     Dates: start: 2018
  2. DULOXETINE. [Concomitant]
     Active Substance: DULOXETINE
     Indication: FIBROMYALGIA
     Dosage: 90 MG, DAILY [60 MG IN MORNING, 30 MG AT NIGHT]
     Dates: start: 2010
  3. LYRICA [Suspect]
     Active Substance: PREGABALIN
     Indication: SYSTEMIC LUPUS ERYTHEMATOSUS
  4. LISINOPRIL HCTZ [Concomitant]
     Active Substance: HYDROCHLOROTHIAZIDE\LISINOPRIL
     Indication: HYPERTENSION
     Dosage: UNK [HYDROCHLOROTHIAZIDE 25 MG/ LISINOPRIL 20 MG]
     Dates: start: 2008
  5. LYRICA [Suspect]
     Active Substance: PREGABALIN
     Indication: NEUROPATHY PERIPHERAL
  6. DULOXETINE. [Concomitant]
     Active Substance: DULOXETINE
     Indication: ANXIETY

REACTIONS (3)
  - Nausea [Unknown]
  - Withdrawal syndrome [Unknown]
  - Malaise [Unknown]

NARRATIVE: CASE EVENT DATE: 2018
